FAERS Safety Report 8912976 (Version 1)
Quarter: 2012Q4

REPORT INFORMATION
  Report Type: 
  Country: CN (occurrence: CN)
  Receive Date: 20121116
  Receipt Date: 20121116
  Transmission Date: 20130627
  Serious: Yes (Other)
  Sender: FDA-Public Use
  Company Number: CN-BAXTER-2012BAX022804

PATIENT
  Age: 76 Year
  Sex: Male
  Weight: 68 kg

DRUGS (12)
  1. MEDIUM AND LONG CHAIN FAT EMULSION INJECTION (C8-24) 20% [Suspect]
     Indication: PARENTERAL NUTRITION
     Route: 041
     Dates: start: 20111018, end: 20111018
  2. GLUCOSE [Suspect]
     Indication: DRUG USE FOR UNKNOWN INDICATION
     Route: 042
  3. AMINO ACIDS INJECTION [Suspect]
     Indication: DRUG USE FOR UNKNOWN INDICATION
     Route: 042
  4. GLUCOSE [Suspect]
     Indication: DRUG USE FOR UNKNOWN INDICATION
     Route: 042
  5. SODIUM CHLORIDE 10% [Suspect]
     Indication: DRUG USE FOR UNKNOWN INDICATION
     Route: 042
  6. POTASSIUM CHLORIDE [Suspect]
     Indication: DRUG USE FOR UNKNOWN INDICATION
     Route: 042
  7. ALANYL GLUTAMINE [Suspect]
     Indication: DRUG USE FOR UNKNOWN INDICATION
     Route: 042
  8. FAT-SOLUBLE VITAMINS II [Suspect]
     Indication: DRUG USE FOR UNKNOWN INDICATION
     Dosage: 2 VIALS
     Route: 042
  9. POTASSIUM HYDROGEN PHOSPHATE [Suspect]
     Indication: DRUG USE FOR UNKNOWN INDICATION
     Route: 042
  10. COENZYME A [Suspect]
     Indication: DRUG USE FOR UNKNOWN INDICATION
     Dosage: 200U
     Route: 042
  11. VITAMINS [Suspect]
     Indication: DRUG USE FOR UNKNOWN INDICATION
     Dosage: 2 VIALS
     Route: 042
  12. INSULIN [Suspect]
     Indication: DRUG USE FOR UNKNOWN INDICATION

REACTIONS (6)
  - Pyrexia [Recovering/Resolving]
  - Chills [Recovering/Resolving]
  - Dyspnoea [Recovering/Resolving]
  - Heart rate increased [None]
  - Blood pressure increased [None]
  - Rales [None]
